FAERS Safety Report 8439671-1 (Version None)
Quarter: 2012Q2

REPORT INFORMATION
  Report Type: 
  Country: None (occurrence: None)
  Receive Date: 20120615
  Receipt Date: 20120612
  Transmission Date: 20120825
  Serious: Yes (Hospitalization, Other)
  Sender: FDA-Public Use
  Company Number: US-PFIZER INC-2012127139

PATIENT
  Sex: Female
  Weight: 51.247 kg

DRUGS (5)
  1. AMLODIPINE [Concomitant]
     Indication: HYPERTENSION
     Dosage: 10 MG, DAILY
  2. CHANTIX [Suspect]
     Indication: SMOKING CESSATION THERAPY
     Dosage: 0.5 MG, DAILY
     Dates: start: 20000101, end: 20000101
  3. CHANTIX [Suspect]
     Dosage: UNK
     Dates: start: 20000101, end: 20000101
  4. ENALAPRIL [Concomitant]
     Indication: HYPERTENSION
     Dosage: 10 MG, 2X/DAY
  5. CHANTIX [Suspect]
     Dosage: 1 MG, 2X/DAY
     Dates: start: 20000101, end: 20000101

REACTIONS (5)
  - HEAD INJURY [None]
  - BRAIN INJURY [None]
  - COMA [None]
  - INTRACRANIAL ANEURYSM [None]
  - ACCIDENT [None]
